FAERS Safety Report 8015463-2 (Version None)
Quarter: 2011Q4

REPORT INFORMATION
  Report Type: 
  Country: None (occurrence: None)
  Receive Date: 20111230
  Receipt Date: 20111219
  Transmission Date: 20120403
  Serious: Yes (Hospitalization)
  Sender: FDA-Public Use
  Company Number: JP-AMGEN-JPNSP2011057188

PATIENT
  Age: 69 Year
  Sex: Male
  Weight: 60 kg

DRUGS (18)
  1. PREDNISOLONE [Concomitant]
     Indication: ARTHRITIS
     Dosage: 10 MG, QD
     Route: 048
  2. MICARDIS [Concomitant]
     Dosage: 80 MG/DAY
  3. LEVOTHYROXINE SODIUM [Concomitant]
     Dosage: 50 UG/DAY
  4. ALENDRONATE SODIUM [Concomitant]
     Dosage: 35 MG, WEEKLY
     Route: 048
  5. ENBREL [Suspect]
     Indication: RHEUMATOID ARTHRITIS
     Dosage: 50 MG, QWK
     Route: 058
     Dates: start: 20110831, end: 20111001
  6. WARFARIN SODIUM [Concomitant]
     Dosage: 3 MG
     Route: 048
  7. PYDOXAL [Concomitant]
     Indication: PROPHYLAXIS
     Dosage: 20 MG, QD
     Route: 048
  8. PYDOXAL [Concomitant]
     Dosage: 20 MG/DAY
  9. ENBREL [Suspect]
     Dosage: 25 MG, QWK
     Route: 058
     Dates: start: 20110501
  10. WARFARIN SODIUM [Concomitant]
     Indication: DEEP VEIN THROMBOSIS
     Dosage: 3 MG, QD
     Route: 048
  11. LEVOTHYROXINE SODIUM [Concomitant]
     Indication: HYPOTHYROIDISM
     Dosage: 50 MUG, QD
  12. ALENDRONATE SODIUM [Concomitant]
     Indication: OSTEOPOROSIS PROPHYLAXIS
     Dosage: 35 MG, QWK
     Route: 048
  13. ISONIAZID [Concomitant]
     Indication: ANTIBIOTIC PROPHYLAXIS
     Dosage: 300 MG/DAY
     Route: 048
  14. ISONIAZID [Concomitant]
     Indication: ANTIBIOTIC PROPHYLAXIS
     Dosage: 300 MG, QD
     Route: 048
  15. MICARDIS [Concomitant]
     Indication: HYPERTENSION
     Dosage: 80 MG, QD
  16. ALLOPURINOL [Concomitant]
     Indication: HYPERURICAEMIA
     Dosage: 100 MG/DAY
  17. ALLOPURINOL [Concomitant]
     Indication: HYPERURICAEMIA
     Dosage: 100 MG, QD
  18. PREDNISOLONE [Concomitant]
     Indication: ARTHRITIS
     Dosage: 10 MG/DAY
     Route: 048

REACTIONS (12)
  - BRAIN OEDEMA [None]
  - EYELID OEDEMA [None]
  - ASTHENIA [None]
  - DRUG INEFFECTIVE [None]
  - LIP OEDEMA [None]
  - PANCYTOPENIA [None]
  - CHEILITIS [None]
  - CONJUNCTIVAL HYPERAEMIA [None]
  - PYREXIA [None]
  - DEPRESSED LEVEL OF CONSCIOUSNESS [None]
  - RASH [None]
  - EPSTEIN-BARR VIRUS INFECTION [None]
